FAERS Safety Report 9675888 (Version 1)
Quarter: 2013Q4

REPORT INFORMATION
  Report Type: Spontaneous
  Country: US (occurrence: US)
  Receive Date: 20131107
  Receipt Date: 20131107
  Transmission Date: 20140711
  Serious: Yes (Hospitalization)
  Sender: FDA-Public Use
  Company Number: US-GLAXOSMITHKLINE-B0940148A

PATIENT
  Age: 71 Year
  Sex: Female

DRUGS (2)
  1. BUPROPION [Suspect]
     Route: 048
  2. LAMOTRIGINE [Suspect]
     Route: 065

REACTIONS (9)
  - Overdose [Recovered/Resolved]
  - Status epilepticus [Unknown]
  - Mental status changes [Unknown]
  - Cognitive disorder [Unknown]
  - Convulsion [Unknown]
  - Muscle twitching [Unknown]
  - Dyskinesia [Unknown]
  - Disorientation [Unknown]
  - Agitation [Unknown]
